FAERS Safety Report 10389775 (Version 1)
Quarter: 2014Q1

REPORT INFORMATION
  Report Type: Spontaneous
  Country: US (occurrence: None)
  Receive Date: 20140306
  Receipt Date: 20140306
  Transmission Date: 20141002
  Serious: Yes (Life-Threatening, Hospitalization, Other)
  Sender: FDA-Public Use
  Company Number: 163-21880-13092085

PATIENT
  Age: 57 Year
  Sex: Male

DRUGS (2)
  1. REVLIMID (LENALIDOMIDE) (25 MILLIGRAM, CAPSULES) [Suspect]
     Indication: PLASMA CELL MYELOMA
     Dosage: 21 IN 21 D
     Route: 048
     Dates: start: 20130806, end: 20130831
  2. ASPIRIN (ACETYLASALICYLIC ACID) [Concomitant]

REACTIONS (3)
  - Pulmonary embolism [None]
  - Haemoglobin decreased [None]
  - Deep vein thrombosis [None]
